FAERS Safety Report 4496299-6 (Version None)
Quarter: 2004Q3

REPORT INFORMATION
  Report Type: 
  Country: None (occurrence: None)
  Receive Date: 20040921
  Receipt Date: 20040309
  Transmission Date: 20050211
  Serious: Yes (Hospitalization)
  Sender: FDA-Public Use
  Company Number: 163-20785-04030244 (0)

PATIENT
  Age: 47 Year
  Sex: Male

DRUGS (22)
  1. THALOMID [Suspect]
     Indication: GLIOBLASTOMA MULTIFORME
     Dosage: 300 MG, DAILY, ORAL
     Route: 048
  2. CPT-II (IRINOTECAN) [Suspect]
     Indication: GLIOBLASTOMA MULTIFORME
     Dosage: 229 MG, Q WK, INTRAVENOUS
     Route: 042
  3. ASPIRIN [Concomitant]
  4. FIBERCON (P0LYCARBOPHIL CALCIUM) [Concomitant]
  5. NITROGLYCERIN [Concomitant]
  6. TOPROL (METOPROLOL SUCCINATE) [Concomitant]
  7. VIAGRA [Concomitant]
  8. XANAX [Concomitant]
  9. ASA (ACETYLSALICYLIC ACID) (TABLETS) [Concomitant]
  10. BENZOYL PEROXIDE (BENZOYL PEROXIDE) [Concomitant]
  11. HYDROCORTISONE (HYDROCORTISONE) (CREAM) [Concomitant]
  12. IMODIUM [Concomitant]
  13. MOBIC [Concomitant]
  14. ZYRTEC [Concomitant]
  15. KEPPRA [Concomitant]
  16. DECADRON [Concomitant]
  17. HYZAAR [Concomitant]
  18. SENNA (SENNA) (TABLETS) [Concomitant]
  19. ZETIA [Concomitant]
  20. COUMADIN [Concomitant]
  21. MULTIVITAMIN [Concomitant]
  22. PEPCID [Concomitant]

REACTIONS (8)
  - BALANCE DISORDER [None]
  - BRAIN OEDEMA [None]
  - CONFUSIONAL STATE [None]
  - DISEASE PROGRESSION [None]
  - HEADACHE [None]
  - HERPES ZOSTER [None]
  - SOMNOLENCE [None]
  - WOUND INFECTION [None]
